FAERS Safety Report 6812693-X (Version None)
Quarter: 2010Q3

REPORT INFORMATION
  Report Type: 
  Country: None (occurrence: None)
  Receive Date: 20100701
  Receipt Date: 20100628
  Transmission Date: 20110219
  Serious: Yes (Hospitalization)
  Sender: FDA-Public Use
  Company Number: GB-TEVA-237588ISR

PATIENT
  Age: 32 Year
  Sex: Male
  Weight: 77 kg

DRUGS (1)
  1. DILTIAZEM [Suspect]
     Indication: DRESSLER'S SYNDROME
     Route: 048
     Dates: start: 20100512, end: 20100526

REACTIONS (4)
  - ACUTE GENERALISED EXANTHEMATOUS PUSTULOSIS [None]
  - C-REACTIVE PROTEIN INCREASED [None]
  - NEUTROPENIA [None]
  - PYREXIA [None]
